FAERS Safety Report 7914167-1 (Version None)
Quarter: 2011Q4

REPORT INFORMATION
  Report Type: 
  Country: None (occurrence: None)
  Receive Date: 20111115
  Receipt Date: 20111115
  Transmission Date: 20120403
  Serious: Yes (Life-Threatening)
  Sender: FDA-Public Use
  Company Number: None

PATIENT
  Sex: Male
  Weight: 87.089 kg

DRUGS (1)
  1. LATUDA [Suspect]
     Indication: SCHIZOPHRENIA, PARANOID TYPE
     Dates: start: 20111107, end: 20111109

REACTIONS (2)
  - CONVULSION [None]
  - RESUSCITATION [None]
